FAERS Safety Report 9238036 (Version 1)
Quarter: 2013Q1

REPORT INFORMATION
  Report Type: Spontaneous
  Country: US (occurrence: None)
  Receive Date: 20121107
  Receipt Date: 20121107
  Transmission Date: 20140127
  Serious: No
  Sender: FDA-Public Use
  Company Number: 2012HGS-003886

PATIENT
  Age: 62 Year
  Sex: Female
  Weight: 90.72 kg

DRUGS (13)
  1. BENLYSTA [Suspect]
     Indication: SYSTEMIC LUPUS ERYTHEMATOSUS
     Dosage: 1 IN 28 D, INTRAVENOUS DRIP
     Dates: start: 20120710
  2. PLAQUENIL (HYDROXYCHLOROQUINE SULFATE) / ORAL / TABLET, FILM COATED / 200 MILLIGRAM(S) [Concomitant]
  3. PREDNISONE (PREDNISONE) [Concomitant]
  4. AZATHIOPRINE (AZATHIOPRINE) [Concomitant]
  5. TRAMADOL (TRAMADOL) [Concomitant]
  6. GABAPENTIN (GABAPENTIN) [Concomitant]
  7. TEGRETOL XR (CARBAMAZEPINE) [Concomitant]
  8. BONIVA (IBANDRONATE SODIUM) [Concomitant]
  9. CALCIUM (CALCIUM) [Concomitant]
  10. MAGNESIUM (MAGNESIUIM) [Concomitant]
  11. FLEXERIL (CYCLOBENZAPRINE HYDROCHLORIDE) [Concomitant]
  12. VITAMIN D3 (COLECALCIFEROL) [Concomitant]
  13. FISH OIL (FISH OIL) [Concomitant]

REACTIONS (4)
  - Abdominal discomfort [None]
  - Aphonia [None]
  - Throat irritation [None]
  - Diarrhoea [None]
